FAERS Safety Report 13615630 (Version 1)
Quarter: 2017Q2

REPORT INFORMATION
  Report Type: Spontaneous
  Country: US (occurrence: US)
  Receive Date: 20170606
  Receipt Date: 20170606
  Transmission Date: 20170830
  Serious: No
  Sender: FDA-Public Use
  Company Number: US-JNJFOC-20170516223

PATIENT
  Age: 63 Year
  Sex: Male
  Weight: 63.5 kg

DRUGS (1)
  1. NIZORAL A-D [Suspect]
     Active Substance: KETOCONAZOLE
     Indication: ALOPECIA
     Dosage: NICKEL SIZE, 3-4 TIMES A WEEK
     Route: 061

REACTIONS (1)
  - Product use in unapproved indication [Unknown]
